FAERS Safety Report 26207314 (Version 1)
Quarter: 2025Q4

REPORT INFORMATION
  Report Type: Spontaneous
  Country: EU (occurrence: EU)
  Receive Date: 20251229
  Receipt Date: 20251229
  Transmission Date: 20260117
  Serious: Yes (Other)
  Sender: AUROBINDO
  Company Number: EU-AUROBINDO-AUR-APL-2018-005961

PATIENT
  Sex: Female

DRUGS (5)
  1. LETROZOLE [Suspect]
     Active Substance: LETROZOLE
     Indication: Breast cancer
     Dosage: 2.5 MG, UNK
     Route: 065
  2. TASIGNA [Suspect]
     Active Substance: NILOTINIB
     Indication: Chronic myeloid leukaemia
     Dosage: 600 MG, DAILY
     Route: 061
  3. BISOPROLOL [Concomitant]
     Active Substance: BISOPROLOL
     Indication: Hypertension
     Dosage: 5 MG, UNK
     Route: 065
  4. HYGROTON [Concomitant]
     Active Substance: CHLORTHALIDONE
     Indication: Hypertension
     Dosage: 25 MG, UNK
     Route: 065
  5. RAMIPRIL [Concomitant]
     Active Substance: RAMIPRIL
     Indication: Hypertension
     Dosage: 10 MG, UNK
     Route: 065

REACTIONS (14)
  - Gamma-glutamyltransferase increased [Unknown]
  - Transaminases increased [Not Recovered/Not Resolved]
  - Neutrophil count increased [Unknown]
  - Platelet count increased [Unknown]
  - Blood alkaline phosphatase increased [Unknown]
  - Mean cell haemoglobin concentration increased [Unknown]
  - Mean cell haemoglobin increased [Unknown]
  - Eosinophil count increased [Unknown]
  - Vitamin B12 increased [Unknown]
  - Alanine aminotransferase increased [Not Recovered/Not Resolved]
  - Basophil count increased [Unknown]
  - White blood cell count increased [Unknown]
  - Blood lactate dehydrogenase increased [Unknown]
  - Neutrophil percentage increased [Unknown]

NARRATIVE: CASE EVENT DATE: 20151203
